FAERS Safety Report 12918337 (Version 2)
Quarter: 2017Q1

REPORT INFORMATION
  Report Type: Spontaneous
  Country: US (occurrence: US)
  Receive Date: 20161107
  Receipt Date: 20170111
  Transmission Date: 20170428
  Serious: No
  Sender: FDA-Public Use
  Company Number: US-009507513-1610USA009809

PATIENT
  Age: 81 Year
  Sex: Male

DRUGS (3)
  1. SINEMET [Suspect]
     Active Substance: CARBIDOPA\LEVODOPA
     Indication: PRODUCT USED FOR UNKNOWN INDICATION
     Dosage: UNK
     Route: 065
  2. NORTHERA [Suspect]
     Active Substance: DROXIDOPA
     Indication: BLOOD PRESSURE ABNORMAL
     Dosage: 100 MG, IN THE MORNING
     Route: 065
     Dates: start: 20160918
  3. CINNAMON. [Suspect]
     Active Substance: CINNAMON
     Indication: BLOOD PRESSURE MANAGEMENT
     Route: 065

REACTIONS (11)
  - Asthenia [Recovering/Resolving]
  - Hypotension [Unknown]
  - Fatigue [Unknown]
  - Sleep talking [Not Recovered/Not Resolved]
  - Fall [Unknown]
  - Mobility decreased [Recovering/Resolving]
  - Dizziness [Unknown]
  - Poor quality sleep [Unknown]
  - Blood pressure fluctuation [Unknown]
  - Neuropathy peripheral [Unknown]
  - Hypersomnia [Recovering/Resolving]

NARRATIVE: CASE EVENT DATE: 201609
